FAERS Safety Report 20776360 (Version 3)
Quarter: 2022Q2

REPORT INFORMATION
  Report Type: Report from Study
  Country: US (occurrence: US)
  Receive Date: 20220502
  Receipt Date: 20220610
  Transmission Date: 20220721
  Serious: No
  Sender: FDA-Public Use
  Company Number: US-NOVARTISTESTPH-NVSC2022US101015

PATIENT
  Sex: Female

DRUGS (1)
  1. TASIGNA [Suspect]
     Active Substance: NILOTINIB
     Indication: Product used for unknown indication
     Dosage: 150 MG, BID (TABLET)
     Route: 048

REACTIONS (4)
  - Memory impairment [Recovered/Resolved]
  - Product dose omission issue [Recovered/Resolved]
  - Incorrect dose administered [Unknown]
  - Energy increased [Not Recovered/Not Resolved]
